FAERS Safety Report 10661848 (Version 2)
Quarter: 2015Q1

REPORT INFORMATION
  Report Type: Spontaneous
  Country: GB (occurrence: GB)
  Receive Date: 20141218
  Receipt Date: 20150121
  Transmission Date: 20150720
  Serious: Yes (Other)
  Sender: FDA-Public Use
  Company Number: GB-BAYER-2014-185545

PATIENT
  Sex: Female

DRUGS (3)
  1. ADALAT [Suspect]
     Active Substance: NIFEDIPINE
     Indication: HYPERTENSION
     Dosage: 10 MG, BID
  2. PREDNISOLONE. [Concomitant]
     Active Substance: PREDNISOLONE
     Indication: BONE DISORDER
     Dosage: 7 MG, UNK
  3. ADCAL D3 [Concomitant]
     Active Substance: CALCIUM CARBONATE\CHOLECALCIFEROL
     Indication: BONE DISORDER
     Dosage: UNK

REACTIONS (2)
  - Hypertension [Not Recovered/Not Resolved]
  - Temporal arteritis [None]

NARRATIVE: CASE EVENT DATE: 2014
